FAERS Safety Report 9668939 (Version 2)
Quarter: 2013Q4

REPORT INFORMATION
  Report Type: Spontaneous
  Country: MX (occurrence: MX)
  Receive Date: 20131105
  Receipt Date: 20131105
  Transmission Date: 20140711
  Serious: Yes (Hospitalization, Other)
  Sender: FDA-Public Use
  Company Number: MX-ELI_LILLY_AND_COMPANY-MX201309003897

PATIENT
  Age: 49 Year
  Sex: Female

DRUGS (8)
  1. CYMBALTA [Suspect]
     Indication: BACK PAIN
     Dosage: 60 MG, QD
     Route: 048
     Dates: start: 201109
  2. METHYLPREDNISOLONE [Interacting]
     Indication: MUSCULOSKELETAL PAIN
     Dosage: UNK, UNKNOWN
     Route: 065
  3. CARBAMAZEPINE [Concomitant]
     Indication: PAIN
     Dosage: UNK
     Dates: start: 2011
  4. AMITRIPTYLINE [Concomitant]
     Indication: PAIN
     Dosage: UNK
     Dates: start: 2011
  5. PREGABALIN [Concomitant]
     Indication: PAIN
     Dosage: UNK
     Dates: start: 2011
  6. TRAMADOL [Concomitant]
     Indication: PAIN
     Dosage: UNK
     Dates: start: 2011
  7. OXCARBAZEPINE [Interacting]
     Indication: PAIN
     Dosage: UNK
  8. METADONA [Concomitant]
     Indication: PAIN

REACTIONS (17)
  - Serotonin syndrome [Recovered/Resolved]
  - Syncope [Unknown]
  - Suicidal ideation [Unknown]
  - Tachycardia [Recovered/Resolved]
  - Affect lability [Recovered/Resolved]
  - Musculoskeletal pain [Recovered/Resolved]
  - Dyspnoea [Recovered/Resolved]
  - Anxiety [Recovered/Resolved]
  - Feeling of despair [Recovered/Resolved]
  - Tremor [Unknown]
  - Drug interaction [Recovered/Resolved]
  - Tachycardia [Recovered/Resolved]
  - Insomnia [Recovered/Resolved]
  - Anxiety [Recovered/Resolved]
  - Insomnia [Recovered/Resolved]
  - Hyperhidrosis [Recovered/Resolved]
  - Drug withdrawal syndrome [Recovered/Resolved]
